FAERS Safety Report 16297394 (Version 2)
Quarter: 2022Q1

REPORT INFORMATION
  Report Type: Spontaneous
  Country: PT (occurrence: PT)
  Receive Date: 20190510
  Receipt Date: 20220316
  Transmission Date: 20220423
  Serious: Yes (Other)
  Sender: FDA-Public Use
  Company Number: PT-AUROBINDO-AUR-APL-2019-024712

PATIENT
  Age: 38 Year
  Sex: Female

DRUGS (20)
  1. EXEMESTANE [Suspect]
     Active Substance: EXEMESTANE
     Indication: Breast cancer stage III
     Dosage: UNK
     Route: 065
     Dates: start: 201807, end: 201903
  2. CAPECITABINE [Suspect]
     Active Substance: CAPECITABINE
     Indication: Breast cancer stage III
     Dosage: UNK
     Route: 065
     Dates: start: 201609, end: 201701
  3. CAPECITABINE [Suspect]
     Active Substance: CAPECITABINE
     Dosage: UNK
     Route: 065
     Dates: start: 201702, end: 201709
  4. CAPECITABINE [Suspect]
     Active Substance: CAPECITABINE
     Dosage: UNK
     Route: 065
     Dates: start: 201710, end: 201903
  5. LETROZOLE [Suspect]
     Active Substance: LETROZOLE
     Indication: Breast cancer stage III
     Dosage: UNK
     Route: 065
     Dates: start: 201805, end: 201806
  6. CISPLATIN [Suspect]
     Active Substance: CISPLATIN
     Indication: Breast cancer stage III
     Dosage: UNK
     Route: 065
     Dates: start: 201804, end: 201804
  7. DENOSUMAB [Suspect]
     Active Substance: DENOSUMAB
     Indication: Breast cancer stage III
     Dosage: UNK
     Route: 065
     Dates: start: 201804, end: 201804
  8. DENOSUMAB [Suspect]
     Active Substance: DENOSUMAB
     Dosage: UNK 1, FOR 4 WEEKS, UNK UNK, Q4W
     Route: 065
     Dates: start: 20180301
  9. DENOSUMAB [Suspect]
     Active Substance: DENOSUMAB
     Dosage: UNK
     Route: 065
     Dates: start: 201805, end: 201806
  10. EVEROLIMUS [Suspect]
     Active Substance: EVEROLIMUS
     Indication: Breast cancer stage III
     Dosage: UNK
     Route: 065
     Dates: start: 201807, end: 201903
  11. GOSERELIN [Suspect]
     Active Substance: GOSERELIN
     Indication: Breast cancer stage III
     Dosage: UNK
     Route: 065
     Dates: start: 201710, end: 201803
  12. GOSERELIN [Suspect]
     Active Substance: GOSERELIN
     Dosage: UNK
     Route: 065
     Dates: start: 201807, end: 201903
  13. GOSERELIN [Suspect]
     Active Substance: GOSERELIN
     Dosage: UNK
     Route: 065
     Dates: start: 201805, end: 201806
  14. LAPATINIB [Suspect]
     Active Substance: LAPATINIB
     Indication: Breast cancer stage III
     Dosage: UNK
     Route: 065
     Dates: start: 201702, end: 201709
  15. LAPATINIB [Suspect]
     Active Substance: LAPATINIB
     Dosage: UNK
     Route: 065
     Dates: start: 201805, end: 201806
  16. LAPATINIB [Suspect]
     Active Substance: LAPATINIB
     Dosage: UNK
     Route: 065
     Dates: start: 201807, end: 201903
  17. LAPATINIB [Suspect]
     Active Substance: LAPATINIB
     Dosage: UNK
     Route: 065
     Dates: start: 201710, end: 201803
  18. TRASTUZUMAB [Suspect]
     Active Substance: TRASTUZUMAB
     Indication: Breast cancer stage III
     Dosage: UNK
     Route: 065
     Dates: start: 201710, end: 201803
  19. TRASTUZUMAB [Suspect]
     Active Substance: TRASTUZUMAB
     Dosage: UNK
     Route: 065
     Dates: start: 201805, end: 201806
  20. TRASTUZUMAB [Suspect]
     Active Substance: TRASTUZUMAB
     Dosage: UNK
     Route: 065
     Dates: start: 201804, end: 201804

REACTIONS (7)
  - Dermatitis [Unknown]
  - Therapeutic response decreased [Unknown]
  - Malignant neoplasm progression [Unknown]
  - Skin lesion [Unknown]
  - Breast cancer stage III [Unknown]
  - Inappropriate schedule of product administration [Unknown]
  - Metastases to skin [Unknown]
